FAERS Safety Report 8121302-1 (Version None)
Quarter: 2012Q1

REPORT INFORMATION
  Report Type: 
  Country: None (occurrence: None)
  Receive Date: 20120206
  Receipt Date: 20120127
  Transmission Date: 20120608
  Serious: Yes (Other)
  Sender: FDA-Public Use
  Company Number: AUR-APL-2012-00697

PATIENT
  Age: 36 Year
  Sex: Female
  Weight: 73.0291 kg

DRUGS (3)
  1. CIPROFLOXACIN [Suspect]
     Indication: URINARY TRACT INFECTION
     Dosage: 4 DOSAGE FORMS (2 DOSAGE FORMS, 2 IN 1 D), ORAL
     Route: 048
     Dates: start: 20120119, end: 20120122
  2. FLOVENT [Concomitant]
  3. ALBUTEROL [Concomitant]

REACTIONS (6)
  - MALAISE [None]
  - HYPOAESTHESIA [None]
  - FATIGUE [None]
  - MUSCULAR WEAKNESS [None]
  - TENDON PAIN [None]
  - GAIT DISTURBANCE [None]
